FAERS Safety Report 9283827 (Version 2)
Quarter: 2013Q2

REPORT INFORMATION
  Report Type: Spontaneous
  Country: AU (occurrence: AU)
  Receive Date: 20130510
  Receipt Date: 20130522
  Transmission Date: 20140414
  Serious: Yes (Death)
  Sender: FDA-Public Use
  Company Number: AU-B.I. PHARMACEUTICALS,INC./RIDGEFIELD-2013-AU-00566AU

PATIENT
  Sex: Female

DRUGS (16)
  1. PRADAXA [Suspect]
     Dosage: 220 MG
  2. CITALOPRAM [Concomitant]
     Dosage: 20 MG
  3. DOCUSATE SODIUM\SENNOSIDES [Concomitant]
     Dosage: 50MG/8MG
  4. COVERSYL [Concomitant]
     Dosage: 2.5 MG
  5. DIGOXIN [Concomitant]
     Dosage: 250 MCG
  6. ENDONE [Concomitant]
     Dosage: 30 MG
  7. FRUSEMIDE [Concomitant]
     Dosage: 40 MG
  8. LACTULOSE [Concomitant]
  9. MAXOLON [Concomitant]
     Dosage: 40 MG
  10. MICROLAX [Concomitant]
     Dosage: 3.125G-450MG-45MG MICROENEMA
  11. MIDAZOLAM [Concomitant]
     Dosage: INJECTION
  12. MORPHINE [Concomitant]
     Dosage: INJECTION
     Route: 030
  13. NORMACOL PLUS [Concomitant]
  14. PANADOL OSTEO [Concomitant]
  15. TARGIN [Concomitant]
     Dosage: 30MG;15MG
  16. TEGRETOL [Concomitant]
     Dosage: 600 MG

REACTIONS (1)
  - Myocardial infarction [Fatal]
